FAERS Safety Report 11938457 (Version 2)
Quarter: 2016Q1

REPORT INFORMATION
  Report Type: Spontaneous
  Country: US (occurrence: US)
  Receive Date: 20160122
  Receipt Date: 20160125
  Transmission Date: 20160526
  Serious: No
  Sender: FDA-Public Use
  Company Number: US-PFIZER INC-2016027827

PATIENT
  Age: 31 Year
  Sex: Female
  Weight: 64.4 kg

DRUGS (4)
  1. AMBIEN [Concomitant]
     Active Substance: ZOLPIDEM TARTRATE
     Dosage: 5 MG, 1X/DAY(DAILY AT BEDTIME)
     Route: 048
  2. EFFEXOR XR [Suspect]
     Active Substance: VENLAFAXINE HYDROCHLORIDE
     Dosage: 37.5 MG, DAILY
     Route: 048
  3. LYRICA [Suspect]
     Active Substance: PREGABALIN
     Dosage: 200 MG, 3X/DAY
     Route: 048
  4. MIRENA [Concomitant]
     Active Substance: LEVONORGESTREL
     Dosage: 20 UG, UNK (20 MCG/24HR IU IUD )

REACTIONS (4)
  - Mood altered [Unknown]
  - Sleep disorder [Unknown]
  - Anxiety [Not Recovered/Not Resolved]
  - Insomnia [Recovering/Resolving]
